FAERS Safety Report 8502428-7 (Version None)
Quarter: 2012Q2

REPORT INFORMATION
  Report Type: 
  Country: None (occurrence: None)
  Receive Date: 20120405
  Receipt Date: 20100624
  Transmission Date: 20120825
  Serious: Yes (Other)
  Sender: FDA-Public Use
  Company Number: PHHY2010US28637

PATIENT
  Age: 73 Year
  Sex: Female
  Weight: 37.7 kg

DRUGS (3)
  1. RECLAST [Suspect]
     Indication: OSTEOPOROSIS
     Dosage: 5 MG, YEARLY, INTRAVENOUS
     Route: 042
     Dates: start: 20100430
  2. LISINOPRIL [Concomitant]
  3. FERRLECIT [Suspect]
     Indication: MINERAL SUPPLEMENTATION
     Dosage: 125 MG DAILY, INTRAVENOUS
     Route: 042
     Dates: start: 20100430, end: 20100430

REACTIONS (7)
  - VOMITING [None]
  - ANAEMIA [None]
  - HAEMOGLOBIN DECREASED [None]
  - HYPOTENSION [None]
  - FATIGUE [None]
  - DIZZINESS [None]
  - DYSPNOEA [None]
